FAERS Safety Report 16163616 (Version 2)
Quarter: 2022Q3

REPORT INFORMATION
  Report Type: Spontaneous
  Country: US (occurrence: US)
  Receive Date: 20190405
  Receipt Date: 20220919
  Transmission Date: 20221026
  Serious: No
  Sender: FDA-Public Use
  Company Number: US-JNJFOC-20161016073

PATIENT
  Sex: Male

DRUGS (3)
  1. RISPERDAL M-TAB [Suspect]
     Active Substance: RISPERIDONE
     Indication: Product used for unknown indication
     Route: 048
  2. RISPERDAL [Suspect]
     Active Substance: RISPERIDONE
     Indication: Product used for unknown indication
     Dosage: 4 1/2 MG A IN NIGHT ( 2MG TABLET 2AT BEDTIME AND 1 MG TABLET 1/2 AT BEDTIME).
     Route: 048
     Dates: start: 20030311, end: 20100430
  3. RISPERIDONE [Suspect]
     Active Substance: RISPERIDONE
     Indication: Product used for unknown indication
     Route: 048
     Dates: start: 20030311, end: 20100430

REACTIONS (2)
  - Emotional disorder [Unknown]
  - Gynaecomastia [Unknown]
